FAERS Safety Report 8358498-2 (Version None)
Quarter: 2012Q2

REPORT INFORMATION
  Report Type: 
  Country: None (occurrence: None)
  Receive Date: 20120514
  Receipt Date: 20120502
  Transmission Date: 20120825
  Serious: Yes (Hospitalization)
  Sender: FDA-Public Use
  Company Number: US-PFIZER INC-2012106987

PATIENT
  Sex: Male
  Weight: 100.23 kg

DRUGS (3)
  1. CLARITIN [Concomitant]
     Indication: HYPERSENSITIVITY
     Dosage: 1 TABLET, DAILY
     Route: 048
     Dates: start: 20120416
  2. VARENICLINE TARTRATE [Suspect]
     Indication: SMOKING CESSATION THERAPY
     Dosage: 2X/DAY
     Route: 048
     Dates: start: 20120113, end: 20120410
  3. XANAX [Concomitant]
     Indication: SLEEP DISORDER THERAPY
     Dosage: 2 MG, 2X/DAY
     Route: 048
     Dates: start: 20120218

REACTIONS (2)
  - SLEEP DISORDER [None]
  - INTENTIONAL SELF-INJURY [None]
